FAERS Safety Report 10661343 (Version 1)
Quarter: 2014Q4

REPORT INFORMATION
  Report Type: Spontaneous
  Country: IT (occurrence: IT)
  Receive Date: 20141218
  Receipt Date: 20141218
  Transmission Date: 20150529
  Serious: Yes (Other)
  Sender: FDA-Public Use
  Company Number: IT-JNJFOC-20141210052

PATIENT
  Age: 59 Year
  Sex: Female

DRUGS (8)
  1. METHOTREXATE [Concomitant]
     Active Substance: METHOTREXATE
     Route: 065
  2. MEDROL [Concomitant]
     Active Substance: METHYLPREDNISOLONE
     Route: 065
  3. FOSAVANCE [Concomitant]
     Active Substance: ALENDRONATE SODIUM\CHOLECALCIFEROL
     Route: 065
  4. DIBASE [Concomitant]
     Active Substance: CHOLECALCIFEROL
     Route: 065
  5. ACETYLSALICYLIC ACID [Concomitant]
     Active Substance: ASPIRIN
     Route: 065
  6. SIMPONI [Suspect]
     Active Substance: GOLIMUMAB
     Indication: RHEUMATOID ARTHRITIS
     Route: 058
     Dates: start: 20110202, end: 20141127
  7. FOLINA [Concomitant]
     Active Substance: FOLIC ACID
     Indication: PALLIATIVE CARE
     Route: 048
     Dates: start: 201104
  8. PROLIA [Concomitant]
     Active Substance: DENOSUMAB
     Route: 065

REACTIONS (3)
  - Localised oedema [Unknown]
  - Mucosal inflammation [Unknown]
  - Vocal cord inflammation [Unknown]

NARRATIVE: CASE EVENT DATE: 20141127
